FAERS Safety Report 8829534 (Version 1)
Quarter: 2012Q4

REPORT INFORMATION
  Report Type: Spontaneous
  Country: US (occurrence: None)
  Receive Date: 20121005
  Receipt Date: 20121005
  Transmission Date: 20130627
  Serious: Yes (Hospitalization)
  Sender: FDA-Public Use
  Company Number: None

PATIENT
  Age: 84 Year
  Sex: Female
  Weight: 57.83 kg

DRUGS (8)
  1. XARELTO [Suspect]
     Indication: ATRIAL FIBRILLATION
     Route: 048
  2. ADVAIR DISKUS [Concomitant]
  3. SPIRVIA [Concomitant]
  4. AMIODARONE [Concomitant]
  5. CELEBREX [Concomitant]
  6. FUROSEMIDE [Concomitant]
  7. LOSARTAN [Concomitant]
  8. METOP [Concomitant]

REACTIONS (3)
  - Anaemia [None]
  - Rectal haemorrhage [None]
  - Lower gastrointestinal haemorrhage [None]
